FAERS Safety Report 16020572 (Version 1)
Quarter: 2019Q1

REPORT INFORMATION
  Report Type: Spontaneous
  Country: CN (occurrence: CN)
  Receive Date: 20190301
  Receipt Date: 20190301
  Transmission Date: 20190418
  Serious: Yes (Other)
  Sender: FDA-Public Use
  Company Number: CN-ROCHE-2268922

PATIENT
  Age: 70 Year
  Sex: Male

DRUGS (9)
  1. OXALIPLATIN. [Suspect]
     Active Substance: OXALIPLATIN
     Indication: RECTAL ADENOCARCINOMA
     Route: 065
     Dates: start: 20170818, end: 20170912
  2. XELODA [Suspect]
     Active Substance: CAPECITABINE
     Route: 048
     Dates: start: 20180315, end: 20190125
  3. OXALIPLATIN. [Suspect]
     Active Substance: OXALIPLATIN
     Route: 065
     Dates: start: 20171128
  4. XELODA [Suspect]
     Active Substance: CAPECITABINE
     Indication: RECTAL ADENOCARCINOMA
     Route: 065
     Dates: start: 20170818, end: 20170912
  5. XELODA [Suspect]
     Active Substance: CAPECITABINE
     Route: 048
     Dates: start: 20171024
  6. XELODA [Suspect]
     Active Substance: CAPECITABINE
     Indication: METASTASES TO LIVER
     Route: 065
     Dates: start: 20170630, end: 20170725
  7. OXALIPLATIN. [Suspect]
     Active Substance: OXALIPLATIN
     Indication: METASTASES TO LIVER
     Route: 065
     Dates: start: 20170630, end: 20170725
  8. XELODA [Suspect]
     Active Substance: CAPECITABINE
     Route: 065
     Dates: start: 20171128
  9. OXALIPLATIN. [Suspect]
     Active Substance: OXALIPLATIN
     Route: 065
     Dates: start: 20171024

REACTIONS (4)
  - Platelet count decreased [Recovered/Resolved]
  - Transaminases increased [Unknown]
  - Hepatic function abnormal [Recovered/Resolved]
  - Pneumothorax [Recovered/Resolved]
